FAERS Safety Report 7177211-8 (Version None)
Quarter: 2010Q4

REPORT INFORMATION
  Report Type: 
  Country: None (occurrence: None)
  Receive Date: 20101220
  Receipt Date: 20101209
  Transmission Date: 20110411
  Serious: Yes (Hospitalization)
  Sender: FDA-Public Use
  Company Number: JP-ELI_LILLY_AND_COMPANY-JP201012002436

PATIENT
  Age: 65 Year
  Sex: Male

DRUGS (8)
  1. PEMETREXED [Suspect]
     Indication: LUNG ADENOCARCINOMA STAGE IV
     Dosage: 850 MG, OTHER
     Route: 042
     Dates: start: 20091110, end: 20100519
  2. PANVITAN [Concomitant]
     Dosage: 0.5 MG, DAILY (1/D)
     Dates: start: 20091014, end: 20100712
  3. HYDROXOCOBALAMIN ACETATE [Concomitant]
     Dosage: 1 MG, UNK
     Route: 030
     Dates: start: 20091014, end: 20100421
  4. LENDORMIN [Concomitant]
     Route: 065
     Dates: start: 20090805, end: 20101031
  5. TAKEPRON [Concomitant]
     Route: 065
     Dates: start: 20090805, end: 20101031
  6. MUCODYNE [Concomitant]
     Route: 065
     Dates: start: 20091104, end: 20101031
  7. HOKUNALIN [Concomitant]
     Route: 023
     Dates: start: 20091104, end: 20091118
  8. OXYCONTIN [Concomitant]
     Route: 065
     Dates: start: 20090805, end: 20101031

REACTIONS (2)
  - C-REACTIVE PROTEIN INCREASED [None]
  - PYREXIA [None]
